FAERS Safety Report 4561519-6 (Version None)
Quarter: 2005Q1

REPORT INFORMATION
  Report Type: 
  Country: None (occurrence: None)
  Receive Date: 20050121
  Receipt Date: 20050106
  Transmission Date: 20050727
  Serious: Yes (Death, Life-Threatening, Hospitalization)
  Sender: FDA-Public Use
  Company Number: F01200500024

PATIENT
  Age: 70 Year
  Sex: 0

DRUGS (4)
  1. OXALIPLATIN [Suspect]
     Indication: COLORECTAL CANCER METASTATIC
     Dosage: 85 MG/M2 Q2W - INTRAVENOUS NOS
     Route: 042
     Dates: start: 20030506, end: 20030506
  2. FLUOROURACIL [Suspect]
     Dosage: 400 MG/M2 Q2W - INTRAVENOUS NOS
     Route: 042
  3. LEUCOVORIN CALCIUM [Suspect]
     Dosage: 200 MG/M2 Q2W - INTRAVENOUS NOS
     Route: 042
     Dates: start: 20030408, end: 20030408
  4. BEVACIZUMAB - SOLUTION - 10 MG/KG [Suspect]
     Dosage: 10 MG/KG Q2W - INTRAVENOUS NOS
     Route: 042
     Dates: start: 20030408, end: 20030408

REACTIONS (7)
  - HYPOXIA [None]
  - INFECTION [None]
  - MALIGNANT NEOPLASM PROGRESSION [None]
  - METASTASES TO LYMPH NODES [None]
  - NIGHT SWEATS [None]
  - PNEUMONITIS [None]
  - WEIGHT DECREASED [None]
